FAERS Safety Report 9417286 (Version 2)
Quarter: 2013Q3

REPORT INFORMATION
  Report Type: Report from Study
  Country: US (occurrence: US)
  Receive Date: 20130724
  Receipt Date: 20130904
  Transmission Date: 20140515
  Serious: Yes (Hospitalization)
  Sender: FDA-Public Use
  Company Number: US-ACTELION-A-NJ2013-86025

PATIENT
  Age: 43 Year
  Sex: Female

DRUGS (5)
  1. TRACLEER [Suspect]
     Indication: PULMONARY ARTERIAL HYPERTENSION
     Dosage: UNK
     Route: 048
  2. ADCIRCA [Concomitant]
  3. FLOLAN [Concomitant]
  4. REMODULIN [Concomitant]
  5. TYVASO [Concomitant]

REACTIONS (12)
  - Back pain [Unknown]
  - Nausea [Unknown]
  - Headache [Unknown]
  - Dizziness [Unknown]
  - Pain in jaw [Unknown]
  - Pain in extremity [Unknown]
  - Anxiety [Unknown]
  - Fatigue [Unknown]
  - Diarrhoea [Unknown]
  - Dyspnoea [Unknown]
  - Oedema [Unknown]
  - Nausea [Unknown]
